FAERS Safety Report 22047322 (Version 3)
Quarter: 2023Q2

REPORT INFORMATION
  Report Type: Other
  Country: CA (occurrence: None)
  Receive Date: 20230301
  Receipt Date: 20230411
  Transmission Date: 20230722
  Serious: Yes (Hospitalization)
  Sender: FDA-Public Use
  Company Number: CA-ROCHE-3266364

PATIENT
  Age: 40 Year
  Sex: Female

DRUGS (1)
  1. OCREVUS [Suspect]
     Active Substance: OCRELIZUMAB
     Indication: Relapsing-remitting multiple sclerosis
     Dosage: MORE DOSAGE INFORMATION IS 300 MG AT DAY 0 AND 14, THEN 600 MG EVERY 6 MONTH
     Route: 042
     Dates: start: 20200731

REACTIONS (4)
  - Kidney enlargement [Unknown]
  - Pelvic neoplasm [Unknown]
  - Polyp [Unknown]
  - Food poisoning [Unknown]

NARRATIVE: CASE EVENT DATE: 20230221
